FAERS Safety Report 5607623-2 (Version None)
Quarter: 2008Q1

REPORT INFORMATION
  Report Type: 
  Country: None (occurrence: None)
  Receive Date: 20080130
  Receipt Date: 20080123
  Transmission Date: 20080703
  Serious: Yes (Hospitalization)
  Sender: FDA-Public Use
  Company Number: PHRM2008FR00710

PATIENT
  Age: 11 Year
  Sex: Female

DRUGS (6)
  1. TRILEPTAL [Suspect]
     Route: 048
     Dates: start: 20060101
  2. EXJADE [Suspect]
     Indication: SICKLE CELL ANAEMIA
     Route: 048
     Dates: start: 20070101
  3. ESOMEPRAZOLE [Suspect]
     Route: 048
     Dates: start: 20060101
  4. ORACILLINE [Suspect]
     Route: 048
  5. RUBOZINC [Concomitant]
     Route: 048
  6. CALCIUM GLUCONATE [Concomitant]
     Dosage: 500 MG/DAY
     Route: 048

REACTIONS (3)
  - BILIARY DILATATION [None]
  - CYTOLYTIC HEPATITIS [None]
  - HEPATIC ENZYME INCREASED [None]
